FAERS Safety Report 4459197-X (Version None)
Quarter: 2004Q3

REPORT INFORMATION
  Report Type: 
  Country: None (occurrence: None)
  Receive Date: 20040927
  Receipt Date: 20040920
  Transmission Date: 20050211
  Serious: Yes (Hospitalization)
  Sender: FDA-Public Use
  Company Number: BR-BRISTOL-MYERS SQUIBB COMPANY-12710778

PATIENT
  Age: 78 Year
  Sex: Male
  Weight: 80 kg

DRUGS (4)
  1. TEQUIN [Suspect]
     Indication: ASTHMA
     Route: 048
     Dates: start: 20040812, end: 20040816
  2. PREDNISOLONE [Concomitant]
  3. OMEPRAZOLE [Concomitant]
  4. SYMBICORT [Concomitant]
     Dosage: 12/400 MCG TWICE DAILY

REACTIONS (1)
  - HYPERGLYCAEMIA [None]
